FAERS Safety Report 5670529-7 (Version None)
Quarter: 2008Q1

REPORT INFORMATION
  Report Type: 
  Country: None (occurrence: None)
  Receive Date: 20080318
  Receipt Date: 20080310
  Transmission Date: 20080703
  Serious: Yes (Other)
  Sender: FDA-Public Use
  Company Number: PHHY2008CA03072

PATIENT

DRUGS (2)
  1. ACE INHIBITOR NOS [Concomitant]
  2. DIOVAN HCT [Suspect]
     Dosage: 80/12.5 MG
     Route: 048

REACTIONS (2)
  - BLOOD PRESSURE SYSTOLIC INCREASED [None]
  - MICROALBUMINURIA [None]
